FAERS Safety Report 8953840 (Version 1)
Quarter: 2012Q4

REPORT INFORMATION
  Report Type: 
  Country: US (occurrence: US)
  Receive Date: 20121206
  Receipt Date: 20121206
  Transmission Date: 20130627
  Serious: Yes (Hospitalization)
  Sender: FDA-Public Use
  Company Number: US-VERTEX PHARMACEUTICALS INC.-2012-025661

PATIENT
  Age: 57 Year
  Sex: Female

DRUGS (4)
  1. INCIVEK [Suspect]
     Indication: HEPATITIS C
     Dosage: 750 mg, tid
     Route: 048
     Dates: start: 20120907, end: 20121130
  2. PEGINTRON                          /01543001/ [Suspect]
     Indication: HEPATITIS C
     Dosage: 120 ?g, qw
     Route: 058
     Dates: start: 20120907
  3. RIBAVIRIN [Suspect]
     Indication: HEPATITIS C
     Dosage: 400mg tab in the am and 600mg tab in the pm
     Route: 048
     Dates: start: 20120907
  4. RIBAVIRIN [Suspect]
     Dosage: 200mg QAM and 400mg QPM
     Dates: start: 201211

REACTIONS (3)
  - Red blood cell count decreased [Not Recovered/Not Resolved]
  - Formication [Not Recovered/Not Resolved]
  - Pruritus [Not Recovered/Not Resolved]
